FAERS Safety Report 21490816 (Version 1)
Quarter: 2022Q4

REPORT INFORMATION
  Report Type: Report from Study
  Country: CA (occurrence: CA)
  Receive Date: 20221021
  Receipt Date: 20221021
  Transmission Date: 20230113
  Serious: Yes (Death, Other)
  Sender: FDA-Public Use
  Company Number: CA-BRISTOL-MYERS SQUIBB COMPANY-2022-124734

PATIENT
  Age: 42 Year
  Sex: Female

DRUGS (2)
  1. OPDIVO [Suspect]
     Active Substance: NIVOLUMAB
     Indication: Ovarian cancer
     Route: 042
     Dates: start: 20220427, end: 20221019
  2. YERVOY [Suspect]
     Active Substance: IPILIMUMAB
     Indication: Ovarian cancer
     Route: 042
     Dates: start: 20220427

REACTIONS (2)
  - Death [Fatal]
  - Off label use [Unknown]
